FAERS Safety Report 6845458-3 (Version None)
Quarter: 2010Q3

REPORT INFORMATION
  Report Type: 
  Country: None (occurrence: None)
  Receive Date: 20100715
  Receipt Date: 20070821
  Transmission Date: 20110219
  Serious: No
  Sender: FDA-Public Use
  Company Number: US-PFIZER INC-2007070293

PATIENT
  Sex: Female
  Weight: 50 kg

DRUGS (5)
  1. CHANTIX [Suspect]
     Indication: SMOKING CESSATION THERAPY
     Route: 048
     Dates: start: 20070301, end: 20070101
  2. PREDNISONE TAB [Suspect]
     Indication: TEMPORAL ARTERITIS
     Dates: end: 20070816
  3. PROTONIX [Concomitant]
  4. LIPITOR [Concomitant]
  5. LOPRESSOR [Concomitant]

REACTIONS (4)
  - ABDOMINAL DISCOMFORT [None]
  - MALAISE [None]
  - NAUSEA [None]
  - VOMITING [None]
